FAERS Safety Report 5265991-8 (Version None)
Quarter: 2007Q1

REPORT INFORMATION
  Report Type: 
  Country: None (occurrence: None)
  Receive Date: 20070312
  Receipt Date: 20070312
  Transmission Date: 20070707
  Serious: Yes (Hospitalization)
  Sender: FDA-Public Use
  Company Number: None

PATIENT
  Sex: Female
  Weight: 48.9 kg

DRUGS (3)
  1. CYTARABINE [Suspect]
     Dosage: 3000 MG
  2. DAUNORUBICIN HCL [Suspect]
     Dosage: 225 MG
  3. ETOPOSIDE [Suspect]
     Dosage: 750 MG

REACTIONS (13)
  - APPENDICITIS [None]
  - BLOOD CULTURE POSITIVE [None]
  - DISSEMINATED INTRAVASCULAR COAGULATION [None]
  - FUNGAL SKIN INFECTION [None]
  - FUSARIUM INFECTION [None]
  - LUNG INFECTION [None]
  - NEUTROPENIA [None]
  - PLEURAL EFFUSION [None]
  - PULMONARY HAEMORRHAGE [None]
  - RESPIRATORY DISTRESS [None]
  - RESPIRATORY FAILURE [None]
  - SPLENIC INFECTION FUNGAL [None]
  - THROMBOCYTOPENIA [None]
